FAERS Safety Report 14268194 (Version 1)
Quarter: 2017Q4

REPORT INFORMATION
  Report Type: Spontaneous
  Country: GE (occurrence: GE)
  Receive Date: 20171211
  Receipt Date: 20171211
  Transmission Date: 20180321
  Serious: Yes (Hospitalization, Disabling)
  Sender: FDA-Public Use
  Company Number: None

PATIENT
  Age: 48 Year
  Sex: Male
  Weight: 58.95 kg

DRUGS (9)
  1. ATIVAN [Concomitant]
     Active Substance: LORAZEPAM
  2. NAPROXEN. [Concomitant]
     Active Substance: NAPROXEN
  3. TYLENOL [Concomitant]
     Active Substance: ACETAMINOPHEN
  4. FOLIC ACID. [Concomitant]
     Active Substance: FOLIC ACID
  5. KEPPRA [Concomitant]
     Active Substance: LEVETIRACETAM
  6. VEMPAC [Concomitant]
  7. BENADRYL [Concomitant]
     Active Substance: DIPHENHYDRAMINE HYDROCHLORIDE
  8. BACLOFEN. [Concomitant]
     Active Substance: BACLOFEN
  9. SIMVASTATIN 10 MG [Suspect]
     Active Substance: SIMVASTATIN
     Indication: BLOOD CHOLESTEROL INCREASED
     Dosage: ?          QUANTITY:30 TABLET(S);?
     Route: 048
     Dates: start: 20170718, end: 20171019

REACTIONS (18)
  - Dry skin [None]
  - Tremor [None]
  - Petit mal epilepsy [None]
  - Dyspnoea [None]
  - Pruritus [None]
  - Muscular weakness [None]
  - Dizziness [None]
  - Muscle spasms [None]
  - Asthenia [None]
  - Vision blurred [None]
  - Blood urine present [None]
  - Therapy cessation [None]
  - Renal disorder [None]
  - Anxiety [None]
  - Weight decreased [None]
  - Throat tightness [None]
  - Blood sodium decreased [None]
  - Head discomfort [None]

NARRATIVE: CASE EVENT DATE: 20170802
